FAERS Safety Report 7505541-6 (Version None)
Quarter: 2011Q2

REPORT INFORMATION
  Report Type: 
  Country: None (occurrence: None)
  Receive Date: 20110519
  Receipt Date: 20110509
  Transmission Date: 20111010
  Serious: Yes (Hospitalization)
  Sender: FDA-Public Use
  Company Number: B0719172A

PATIENT
  Age: 1 Month
  Sex: Female
  Weight: 0.5897 kg

DRUGS (2)
  1. VERAPAMIL [Suspect]
     Dosage: / INTRAVENOUS
     Route: 042
  2. PROPRANOLOL [Suspect]
     Indication: ARRHYTHMIA
     Dosage: ORAL
     Route: 048

REACTIONS (17)
  - HYPERVENTILATION [None]
  - ANURIA [None]
  - HYPOKINESIA [None]
  - METABOLIC ACIDOSIS [None]
  - SUPRAVENTRICULAR TACHYCARDIA [None]
  - VENTRICULAR TACHYCARDIA [None]
  - TOXICITY TO VARIOUS AGENTS [None]
  - BRADYCARDIA [None]
  - HYPOTENSION [None]
  - PNEUMONIA [None]
  - CIRCULATORY COLLAPSE [None]
  - STENOTROPHOMONAS TEST POSITIVE [None]
  - CARDIO-RESPIRATORY ARREST [None]
  - ATRIAL FIBRILLATION [None]
  - BLOOD CREATININE INCREASED [None]
  - CARDIAC DISORDER [None]
  - ARRHYTHMIA [None]
